FAERS Safety Report 21291721 (Version 4)
Quarter: 2022Q4

REPORT INFORMATION
  Report Type: Report from Study
  Country: NL (occurrence: NL)
  Receive Date: 20220903
  Receipt Date: 20221027
  Transmission Date: 20230113
  Serious: Yes (Death)
  Sender: FDA-Public Use
  Company Number: NL-ABBVIE-22K-114-4528124-00

PATIENT
  Age: 75 Year
  Sex: Female

DRUGS (15)
  1. CARBIDOPA\LEVODOPA [Suspect]
     Active Substance: CARBIDOPA\LEVODOPA
     Indication: Parkinson^s disease
     Route: 050
     Dates: start: 20160113
  2. CARBIDOPA\LEVODOPA [Suspect]
     Active Substance: CARBIDOPA\LEVODOPA
     Dosage: MD: 3.2ML, CD: 5.8ML/H, ED: 2.6ML
     Route: 050
  3. CARBIDOPA\LEVODOPA [Suspect]
     Active Substance: CARBIDOPA\LEVODOPA
     Dosage: CD: 5.7ML/H
     Route: 050
  4. CARBIDOPA\LEVODOPA [Suspect]
     Active Substance: CARBIDOPA\LEVODOPA
     Dosage: CD: 4.0ML/H
     Route: 050
  5. CARBIDOPA\LEVODOPA [Suspect]
     Active Substance: CARBIDOPA\LEVODOPA
     Dosage: CD: 4.5ML/H
     Route: 050
  6. CARBIDOPA\LEVODOPA [Suspect]
     Active Substance: CARBIDOPA\LEVODOPA
     Dosage: MD: 3.2ML, CD: 4.5ML/H, ED: 3.2ML
     Route: 050
  7. CARBIDOPA\LEVODOPA [Suspect]
     Active Substance: CARBIDOPA\LEVODOPA
     Dosage: MD: 3.2ML, CD: 4.3ML/H, ED: 3.2ML
     Route: 050
  8. madopar hydrodynamically balanced system [Concomitant]
     Indication: Product used for unknown indication
  9. madopar hydrodynamically balanced system [Concomitant]
     Indication: Product used for unknown indication
     Route: 048
  10. NITROFURANTOIN [Concomitant]
     Active Substance: NITROFURANTOIN
     Indication: Cystitis
     Dosage: 200 MILLIGRAM
  11. NITROFURANTOIN [Concomitant]
     Active Substance: NITROFURANTOIN
     Indication: Cystitis
     Dosage: 200 MILLIGRAM
  12. NITROFURANTOIN [Concomitant]
     Active Substance: NITROFURANTOIN
     Indication: Cystitis
  13. LACTULOSE [Concomitant]
     Active Substance: LACTULOSE
     Indication: Bowel movement irregularity
  14. BISACODYL [Concomitant]
     Active Substance: BISACODYL
     Indication: Bowel movement irregularity
  15. BENSERAZIDE HYDROCHLORIDE\LEVODOPA [Concomitant]
     Active Substance: BENSERAZIDE HYDROCHLORIDE\LEVODOPA
     Indication: Product used for unknown indication
     Route: 048

REACTIONS (5)
  - Urosepsis [Fatal]
  - Slow response to stimuli [Fatal]
  - Urinary tract infection [Fatal]
  - Dyskinesia [Fatal]
  - Sepsis [Fatal]
